FAERS Safety Report 6288253-9 (Version None)
Quarter: 2009Q3

REPORT INFORMATION
  Report Type: 
  Country: None (occurrence: None)
  Receive Date: 20090723
  Receipt Date: 20090420
  Transmission Date: 20100115
  Serious: Yes (Hospitalization)
  Sender: FDA-Public Use
  Company Number: DSU-2009-00923

PATIENT
  Age: 43 Year
  Sex: Male

DRUGS (3)
  1. WELCHOL [Suspect]
     Indication: HYPERLIPIDAEMIA
     Dosage: 2500 MG (625 MG,QID)PER ORAL
     Route: 048
     Dates: start: 20081101, end: 20090401
  2. NEXIUM (ESOMEPRAZOLE) (TABLET) (ESOMEPRAZOLE) [Concomitant]
  3. XANAX (ALPRAZOLAM) (TABLET) (ALPRAZOLAM) [Concomitant]

REACTIONS (1)
  - PANCREATITIS [None]
